FAERS Safety Report 6040090-6 (Version None)
Quarter: 2009Q1

REPORT INFORMATION
  Report Type: 
  Country: None (occurrence: None)
  Receive Date: 20090116
  Receipt Date: 20071207
  Transmission Date: 20090719
  Serious: No
  Sender: FDA-Public Use
  Company Number: US-BRISTOL-MYERS SQUIBB COMPANY-14008221

PATIENT
  Age: 35 Year
  Sex: Female
  Weight: 73 kg

DRUGS (5)
  1. ABILIFY [Suspect]
     Indication: BIPOLAR DISORDER
     Dosage: DRUG DISCONTINUED BEFORE SIX MONTHS.
     Dates: end: 20070101
  2. CLONOPIN [Concomitant]
  3. METHADONE HCL [Concomitant]
  4. IMURAN [Concomitant]
  5. SYNTHROID [Concomitant]

REACTIONS (3)
  - DYSARTHRIA [None]
  - FEELING DRUNK [None]
  - SOMNOLENCE [None]
